FAERS Safety Report 13492401 (Version 2)
Quarter: 2017Q2

REPORT INFORMATION
  Report Type: Spontaneous
  Country: US (occurrence: US)
  Receive Date: 20170427
  Receipt Date: 20170504
  Transmission Date: 20170830
  Serious: Yes (Other)
  Sender: FDA-Public Use
  Company Number: US-PFIZER INC-2017183284

PATIENT
  Sex: Male

DRUGS (2)
  1. ADVIL [Suspect]
     Active Substance: IBUPROFEN
  2. ADVIL PM [Suspect]
     Active Substance: DIPHENHYDRAMINE CITRATE\IBUPROFEN
     Dosage: 4 DF, UNK

REACTIONS (5)
  - Ocular hyperaemia [Unknown]
  - Wrong drug administered [Unknown]
  - Eye haemorrhage [Unknown]
  - Product use issue [Unknown]
  - Somnolence [Unknown]
